FAERS Safety Report 11323636 (Version 9)
Quarter: 2017Q2

REPORT INFORMATION
  Report Type: Report from Study
  Country: JP (occurrence: JP)
  Receive Date: 20150730
  Receipt Date: 20170628
  Transmission Date: 20170829
  Serious: Yes (Other)
  Sender: FDA-Public Use
  Company Number: JP-GLAXOSMITHKLINE INC.-JP2015JPN102901

PATIENT
  Age: 52 Year
  Sex: Male

DRUGS (23)
  1. ZITHROMAC [Suspect]
     Active Substance: AZITHROMYCIN DIHYDRATE
     Dosage: 500 MG, QD
     Route: 065
     Dates: start: 20111228, end: 20130123
  2. BEZATOL [Suspect]
     Active Substance: BEZAFIBRATE
     Dosage: 900 MG, BID
     Route: 048
     Dates: start: 20110929, end: 20111004
  3. LIPIDIL [Suspect]
     Active Substance: FENOFIBRATE
     Dosage: UNK
     Route: 048
     Dates: start: 201306
  4. SULFAMETHOXAZOLE + TRIMETHOPRIM [Suspect]
     Active Substance: SULFAMETHOXAZOLE\TRIMETHOPRIM
     Route: 065
  5. MUCOSTA [Concomitant]
     Active Substance: REBAMIPIDE
     Indication: PROPHYLAXIS
     Dosage: 100 MG, TID
     Dates: start: 20160506
  6. DOLUTEGRAVIR [Suspect]
     Active Substance: DOLUTEGRAVIR
     Indication: HIV INFECTION
     Dosage: 50 MG, UNK
     Route: 048
     Dates: start: 20150116, end: 20150508
  7. BEZATOL [Suspect]
     Active Substance: BEZAFIBRATE
     Dosage: 450 MG, BID
     Route: 048
     Dates: start: 20120118, end: 20120222
  8. MYCOBUTIN [Concomitant]
     Active Substance: RIFABUTIN
     Dosage: 150 MG, UNK
     Dates: start: 20110305, end: 20111227
  9. BEZATOL [Suspect]
     Active Substance: BEZAFIBRATE
     Dosage: 450 MG, BID
     Route: 048
     Dates: start: 20110219, end: 20110914
  10. BEZATOL [Suspect]
     Active Substance: BEZAFIBRATE
     Dosage: 450 MG, BID
     Route: 048
     Dates: start: 20111209, end: 20111228
  11. VALIXA [Suspect]
     Active Substance: VALGANCICLOVIR
     Route: 048
  12. ETHAMBUTOL [Suspect]
     Active Substance: ETHAMBUTOL HYDROCHLORIDE
     Route: 048
  13. ZITHROMAC [Suspect]
     Active Substance: AZITHROMYCIN DIHYDRATE
     Dosage: 1200 MG, UNK
     Route: 065
     Dates: start: 20110107, end: 20110304
  14. EPZICOM [Suspect]
     Active Substance: ABACAVIR SULFATE\LAMIVUDINE
     Indication: HIV INFECTION
     Dosage: 1 DF, UNK
     Route: 048
     Dates: start: 20120111, end: 20150508
  15. PREZISTA [Suspect]
     Active Substance: DARUNAVIR ETHANOLATE
     Indication: HIV INFECTION
     Dosage: 800 MG, QD
     Route: 048
     Dates: start: 20110121, end: 20150115
  16. BAKTAR [Suspect]
     Active Substance: SULFAMETHOXAZOLE\TRIMETHOPRIM
     Route: 048
  17. BEZATOL [Suspect]
     Active Substance: BEZAFIBRATE
     Dosage: 900 MG, BID
     Route: 048
     Dates: start: 20110109, end: 20110218
  18. BEZATOL [Suspect]
     Active Substance: BEZAFIBRATE
     Dosage: 450 MG, BID
     Route: 048
     Dates: start: 20111019, end: 20111125
  19. MYSLEE [Concomitant]
     Active Substance: ZOLPIDEM TARTRATE
     Indication: INSOMNIA
     Dosage: 5 MG, QD
     Dates: start: 20140401
  20. TRIUMEQ [Suspect]
     Active Substance: ABACAVIR SULFATE\DOLUTEGRAVIR SODIUM\LAMIVUDINE
     Indication: HIV INFECTION
     Dosage: 1 DF, 1D
     Route: 048
     Dates: start: 20150509
  21. NORVIR [Suspect]
     Active Substance: RITONAVIR
     Indication: HIV INFECTION
     Dosage: 100 MG, UNK
     Route: 048
     Dates: start: 20110121, end: 20150115
  22. ZITHROMAC [Suspect]
     Active Substance: AZITHROMYCIN DIHYDRATE
     Dosage: 600 MG, QD
     Route: 065
     Dates: start: 20110305, end: 20111227
  23. FOSAMAC [Suspect]
     Active Substance: ALENDRONATE SODIUM
     Route: 048

REACTIONS (8)
  - Eosinophilic pustular folliculitis [Not Recovered/Not Resolved]
  - Hyperuricaemia [Recovering/Resolving]
  - Diabetic neuropathy [Not Recovered/Not Resolved]
  - Back pain [Not Recovered/Not Resolved]
  - Renal impairment [Not Recovered/Not Resolved]
  - Hyperlipidaemia [Not Recovered/Not Resolved]
  - Diabetes mellitus [Not Recovered/Not Resolved]
  - Sinusitis [Not Recovered/Not Resolved]

NARRATIVE: CASE EVENT DATE: 20111216
